FAERS Safety Report 21625559 (Version 1)
Quarter: 2022Q4

REPORT INFORMATION
  Report Type: Spontaneous
  Country: US (occurrence: None)
  Receive Date: 20221122
  Receipt Date: 20221122
  Transmission Date: 20230113
  Serious: No
  Sender: FDA-Public Use
  Company Number: US-ROCHE-2985416

PATIENT
  Sex: Female

DRUGS (5)
  1. HERCEPTIN [Suspect]
     Active Substance: TRASTUZUMAB
     Indication: Breast cancer metastatic
     Dosage: ON AND OFF SINCE 2015 HAS BEEN BACK ON IT SINCE FEB/2020
     Route: 041
  2. TUKYSA [Suspect]
     Active Substance: TUCATINIB
     Indication: Breast cancer metastatic
     Dosage: 2 PILLS IN THE MORNING AND 2 PILLS AT NIGHT
     Route: 065
     Dates: start: 202011
  3. XELODA [Suspect]
     Active Substance: CAPECITABINE
     Indication: Breast cancer metastatic
     Dosage: EVERY OTHER WEEK. 2 PILLS IN THE MORNING 2 PILLS AT NIGHT
     Route: 048
  4. KEPPRA [Concomitant]
     Active Substance: LEVETIRACETAM
     Dosage: 750MG IN THE MORNING 500MG IN THE EVENING
  5. METOPROLOL [Concomitant]
     Active Substance: METOPROLOL

REACTIONS (2)
  - Product dose omission issue [Unknown]
  - No adverse event [Unknown]
